FAERS Safety Report 4726942-5 (Version None)
Quarter: 2005Q3

REPORT INFORMATION
  Report Type: 
  Country: None (occurrence: None)
  Receive Date: 20050725
  Receipt Date: 20050725
  Transmission Date: 20060218
  Serious: Yes (Other)
  Sender: FDA-Public Use
  Company Number: None

PATIENT
  Sex: Male
  Weight: 79.3795 kg

DRUGS (1)
  1. MIRAPEX [Suspect]
     Indication: PARKINSON'S DISEASE

REACTIONS (7)
  - ABNORMAL BEHAVIOUR [None]
  - COMPULSIONS [None]
  - DRUG EFFECT DECREASED [None]
  - GAMBLING [None]
  - PERSONALITY CHANGE [None]
  - SELF INJURIOUS BEHAVIOUR [None]
  - SUICIDAL IDEATION [None]
